FAERS Safety Report 6820436-9 (Version None)
Quarter: 2010Q3

REPORT INFORMATION
  Report Type: 
  Country: None (occurrence: None)
  Receive Date: 20100707
  Receipt Date: 20100628
  Transmission Date: 20110219
  Serious: Yes (Other)
  Sender: FDA-Public Use
  Company Number: BR-PFIZER INC-2010080242

PATIENT
  Age: 29 Year
  Sex: Female
  Weight: 51 kg

DRUGS (2)
  1. CHAMPIX [Suspect]
     Indication: SMOKING CESSATION THERAPY
     Dosage: UNK
     Route: 048
     Dates: start: 20100225, end: 20100528
  2. NICORET [Concomitant]
     Indication: SMOKING CESSATION THERAPY
     Dosage: UNK
     Dates: start: 20100201, end: 20100101

REACTIONS (6)
  - AMNESIA [None]
  - BINGE EATING [None]
  - INSOMNIA [None]
  - NAUSEA [None]
  - POLYDIPSIA [None]
  - ROAD TRAFFIC ACCIDENT [None]
